FAERS Safety Report 18496402 (Version 3)
Quarter: 2020Q4

REPORT INFORMATION
  Report Type: Report from Study
  Country: DE (occurrence: DE)
  Receive Date: 20201112
  Receipt Date: 20201201
  Transmission Date: 20210114
  Serious: Yes (Other)
  Sender: FDA-Public Use
  Company Number: DE-EMD SERONO-9180248

PATIENT
  Age: 60 Year
  Sex: Male

DRUGS (9)
  1. CLADRIBINE. [Suspect]
     Active Substance: CLADRIBINE
     Dosage: NUMBER OF TABLETS:8
     Route: 048
     Dates: start: 20070103, end: 20070107
  2. CLADRIBINE. [Suspect]
     Active Substance: CLADRIBINE
     Dosage: NUMBER OF TABLETS:8
     Route: 048
     Dates: start: 20060406, end: 20060410
  3. REBIF [Concomitant]
     Active Substance: INTERFERON BETA-1A
     Indication: MULTIPLE SCLEROSIS
     Route: 058
     Dates: start: 199903, end: 200307
  4. CLADRIBINE. [Suspect]
     Active Substance: CLADRIBINE
     Dosage: NUMBER OF TABLETS:7
     Route: 048
     Dates: start: 20060309, end: 20060313
  5. COPAXONE [Concomitant]
     Active Substance: GLATIRAMER ACETATE
     Indication: MULTIPLE SCLEROSIS
     Dates: start: 200510, end: 200511
  6. CLADRIBINE. [Suspect]
     Active Substance: CLADRIBINE
     Dosage: NUMBER OF TABLETS:7
     Route: 048
     Dates: start: 20070210, end: 20070214
  7. CLADRIBINE. [Suspect]
     Active Substance: CLADRIBINE
     Indication: MULTIPLE SCLEROSIS
     Dosage: NUMBER OF TABLETS:8
     Route: 048
     Dates: start: 20060209, end: 20060213
  8. CLADRIBINE. [Suspect]
     Active Substance: CLADRIBINE
     Dosage: NUMBER OF TABLETS:7
     Route: 048
     Dates: start: 20060504, end: 20060508
  9. CLADRIBINE. [Suspect]
     Active Substance: CLADRIBINE
     Dosage: CLADRIBINE DURING THE 96 WEEK
     Route: 048
     Dates: start: 20090929, end: 20091003

REACTIONS (1)
  - Prostate cancer [Recovered/Resolved]

NARRATIVE: CASE EVENT DATE: 201908
